FAERS Safety Report 5614546-1 (Version None)
Quarter: 2008Q1

REPORT INFORMATION
  Report Type: 
  Country: None (occurrence: None)
  Receive Date: 20080205
  Receipt Date: 20080109
  Transmission Date: 20080703
  Serious: No
  Sender: FDA-Public Use
  Company Number: US-BOEHRINGER INGELHEIM GMBH, GERMANY-2007-BP-25683BP

PATIENT
  Sex: Male

DRUGS (8)
  1. SPIRIVA [Suspect]
     Indication: CHRONIC OBSTRUCTIVE PULMONARY DISEASE
  2. XOPENEX [Concomitant]
  3. PULMICORT [Concomitant]
  4. ACETYLCYSTEINE [Concomitant]
  5. PREDNISONE TAB [Concomitant]
  6. FLOMAX [Concomitant]
  7. PLAVIX [Concomitant]
  8. VYTORIN [Concomitant]

REACTIONS (1)
  - DRUG INEFFECTIVE [None]
